FAERS Safety Report 24017171 (Version 1)
Quarter: 2024Q2

REPORT INFORMATION
  Report Type: Report from Study
  Country: CA (occurrence: CA)
  Receive Date: 20240627
  Receipt Date: 20240627
  Transmission Date: 20240716
  Serious: Yes (Other)
  Sender: FDA-Public Use
  Company Number: CA-ABBVIE-5810630

PATIENT
  Sex: Female

DRUGS (1)
  1. SKYRIZI [Suspect]
     Active Substance: RISANKIZUMAB-RZAA
     Indication: Crohn^s disease
     Route: 058
     Dates: start: 20231207

REACTIONS (7)
  - Gastrointestinal disorder [Unknown]
  - Crohn^s disease [Recovering/Resolving]
  - Terminal ileitis [Unknown]
  - Hyperaemia [Unknown]
  - Frequent bowel movements [Unknown]
  - Haematochezia [Unknown]
  - Mucous stools [Unknown]

NARRATIVE: CASE EVENT DATE: 20231201
